FAERS Safety Report 20922262 (Version 1)
Quarter: 2022Q2

REPORT INFORMATION
  Report Type: Spontaneous
  Country: JP (occurrence: JP)
  Receive Date: 20220607
  Receipt Date: 20220607
  Transmission Date: 20220721
  Serious: Yes (Death, Other)
  Sender: FDA-Public Use
  Company Number: JP-SUN PHARMACEUTICAL INDUSTRIES LTD-2022RR-339429

PATIENT
  Age: 10 Year
  Sex: Male

DRUGS (17)
  1. DASATINIB [Suspect]
     Active Substance: DASATINIB
     Indication: Precursor B-lymphoblastic lymphoma recurrent
     Dosage: 60 MILLIGRAM/SQ. METER, DAILY
     Route: 065
  2. MELPHALAN [Suspect]
     Active Substance: MELPHALAN
     Indication: Precursor B-lymphoblastic lymphoma recurrent
     Dosage: 180 MILLIGRAM/SQ. METER
     Route: 065
  3. IMATINIB [Suspect]
     Active Substance: IMATINIB
     Indication: Precursor B-lymphoblastic lymphoma recurrent
     Dosage: UNK
     Route: 065
  4. METHOTREXATE [Suspect]
     Active Substance: METHOTREXATE
     Indication: Precursor B-lymphoblastic lymphoma recurrent
     Dosage: UNK, HIGH-DOSE
     Route: 065
  5. DEXAMETHASONE [Suspect]
     Active Substance: DEXAMETHASONE
     Indication: Precursor B-lymphoblastic lymphoma recurrent
     Dosage: UNK
     Route: 065
  6. DEXAMETHASONE [Suspect]
     Active Substance: DEXAMETHASONE
     Dosage: UNK
     Route: 065
  7. VINCRISTINE [Suspect]
     Active Substance: VINCRISTINE
     Indication: Precursor B-lymphoblastic lymphoma recurrent
     Dosage: UNK
     Route: 065
  8. PREDNISONE [Suspect]
     Active Substance: PREDNISONE
     Indication: Precursor B-lymphoblastic lymphoma
     Dosage: UNK
     Route: 065
  9. PONATINIB [Concomitant]
     Active Substance: PONATINIB
     Indication: Precursor B-lymphoblastic lymphoma
     Dosage: 14 MILLIGRAM/SQ. METER, DAILY
     Route: 065
  10. PONATINIB [Concomitant]
     Active Substance: PONATINIB
     Dosage: 7 MILLIGRAM/SQ. METER, DAILY
     Route: 065
  11. CYTARABINE [Concomitant]
     Active Substance: CYTARABINE
     Indication: Precursor B-lymphoblastic lymphoma recurrent
     Dosage: UNK, HIGH DOSE
     Route: 065
  12. CYTARABINE [Concomitant]
     Active Substance: CYTARABINE
     Dosage: UNK
     Route: 065
  13. ETOPOSIDE [Concomitant]
     Active Substance: ETOPOSIDE
     Indication: Precursor B-lymphoblastic lymphoma recurrent
     Dosage: UNK
     Route: 065
  14. VINORELBINE [Concomitant]
     Active Substance: VINORELBINE TARTRATE
     Indication: Precursor B-lymphoblastic lymphoma recurrent
     Dosage: UNK
     Route: 065
  15. DAUNORUBICIN [Concomitant]
     Active Substance: DAUNORUBICIN
     Indication: Precursor B-lymphoblastic lymphoma recurrent
     Dosage: UNK
     Route: 065
  16. IFOSFAMIDE [Concomitant]
     Active Substance: IFOSFAMIDE
     Indication: Precursor B-lymphoblastic lymphoma recurrent
     Dosage: UNK
     Route: 065
  17. MITOXANTRONE HYDROCHLORIDE [Concomitant]
     Active Substance: MITOXANTRONE HYDROCHLORIDE
     Indication: Precursor B-lymphoblastic lymphoma recurrent
     Dosage: UNK
     Route: 065

REACTIONS (4)
  - Disease progression [Fatal]
  - Gastrointestinal haemorrhage [Unknown]
  - Vomiting [Unknown]
  - Nausea [Unknown]
